FAERS Safety Report 16232489 (Version 3)
Quarter: 2019Q2

REPORT INFORMATION
  Report Type: Spontaneous
  Country: US (occurrence: US)
  Receive Date: 20190424
  Receipt Date: 20190527
  Transmission Date: 20190711
  Serious: No
  Sender: FDA-Public Use
  Company Number: US-ALKERMES INC.-ALK-2019-002075

PATIENT
  Age: 28 Year
  Sex: Male
  Weight: 74.38 kg

DRUGS (2)
  1. VIVITROL [Suspect]
     Active Substance: NALTREXONE
     Dosage: 380 MG, QMO
     Route: 030
     Dates: start: 2015
  2. VIVITROL [Suspect]
     Active Substance: NALTREXONE
     Indication: DRUG DEPENDENCE
     Dosage: 380 MG, QMO
     Route: 030

REACTIONS (7)
  - Injection site reaction [Recovered/Resolved]
  - Product preparation issue [Unknown]
  - Injection site pain [Recovered/Resolved]
  - Injection site mass [Recovered/Resolved]
  - Abnormal behaviour [Unknown]
  - Drug dependence [Unknown]
  - Product dose omission [Unknown]

NARRATIVE: CASE EVENT DATE: 20190404
